FAERS Safety Report 4627266-7 (Version None)
Quarter: 2005Q1

REPORT INFORMATION
  Report Type: 
  Country: None (occurrence: None)
  Receive Date: 20050331
  Receipt Date: 20050318
  Transmission Date: 20050727
  Serious: Yes (Hospitalization)
  Sender: FDA-Public Use
  Company Number: CA-2005-004082

PATIENT
  Age: 55 Year
  Sex: Female

DRUGS (9)
  1. BETASERON [Suspect]
     Indication: RELAPSING-REMITTING MULTIPLE SCLEROSIS
     Dosage: 8 MIU, EVERY 2D, SUBCUTANEOUS
     Route: 058
     Dates: start: 19991110, end: 20050313
  2. BACLOFEN [Concomitant]
  3. RANITIDINE [Concomitant]
  4. LISINOPRIL [Concomitant]
  5. DESIPRAMINE HCL [Concomitant]
  6. OXYCONTIN [Concomitant]
  7. OXYCOCET (OXYCODONE HYDROCHLORIDE) [Concomitant]
  8. ALFUZOSIN HYDROCHLORIDE [Concomitant]
  9. FUROSEMIDE [Concomitant]

REACTIONS (1)
  - OSTEOARTHRITIS [None]
